FAERS Safety Report 19036930 (Version 1)
Quarter: 2021Q1

REPORT INFORMATION
  Report Type: Spontaneous
  Country: UM (occurrence: UM)
  Receive Date: 20210319
  Receipt Date: 20210319
  Transmission Date: 20210420
  Serious: Yes (Hospitalization)
  Sender: FDA-Public Use
  Company Number: None

PATIENT
  Age: 68 Year
  Sex: Male

DRUGS (3)
  1. METOPROLOL TARTRATE. [Concomitant]
     Active Substance: METOPROLOL TARTRATE
  2. REPATHA [Suspect]
     Active Substance: EVOLOCUMAB
     Indication: DRUG THERAPY
     Route: 058
     Dates: start: 20200608
  3. CLOPIDOGREL [Concomitant]
     Active Substance: CLOPIDOGREL BISULFATE

REACTIONS (2)
  - Enzyme level abnormal [None]
  - Myocardial infarction [None]

NARRATIVE: CASE EVENT DATE: 20210318
